FAERS Safety Report 15743208 (Version 1)
Quarter: 2018Q4

REPORT INFORMATION
  Report Type: Spontaneous
  Country: AU (occurrence: AU)
  Receive Date: 20181220
  Receipt Date: 20181220
  Transmission Date: 20190205
  Serious: Yes (Other)
  Sender: FDA-Public Use
  Company Number: AU-ROCHE-69814

PATIENT
  Age: 41 Year
  Sex: Male

DRUGS (3)
  1. PANADEINE FORTE [Suspect]
     Active Substance: ACETAMINOPHEN\CODEINE PHOSPHATE
     Indication: BACK PAIN
     Route: 065
     Dates: start: 19950222, end: 19950222
  2. VALIUM [Suspect]
     Active Substance: DIAZEPAM
     Indication: BACK PAIN
     Route: 048
     Dates: start: 19950222, end: 19950222
  3. SURGAM [Suspect]
     Active Substance: TIAPROFENIC ACID
     Indication: BACK PAIN
     Route: 065
     Dates: start: 19950222, end: 19950222

REACTIONS (2)
  - Angioedema [Recovered/Resolved]
  - Dyspnoea [Recovered/Resolved]

NARRATIVE: CASE EVENT DATE: 19950222
